FAERS Safety Report 12604627 (Version 1)
Quarter: 2016Q3

REPORT INFORMATION
  Report Type: Spontaneous
  Country: CA (occurrence: CA)
  Receive Date: 20160728
  Receipt Date: 20160728
  Transmission Date: 20161109
  Serious: Yes (Other)
  Sender: FDA-Public Use
  Company Number: CA-BEH-2016071471

PATIENT
  Age: 42 Year
  Sex: Female
  Weight: 74 kg

DRUGS (1)
  1. PRIVIGEN [Suspect]
     Active Substance: HUMAN IMMUNOGLOBULIN G
     Indication: SECONDARY IMMUNODEFICIENCY
     Dosage: 25 G, 1 EVERY 3 MONTHS
     Route: 042

REACTIONS (2)
  - Chills [Recovered/Resolved]
  - Blood pressure increased [Recovered/Resolved]
